FAERS Safety Report 21772891 (Version 1)
Quarter: 2022Q4

REPORT INFORMATION
  Report Type: Spontaneous
  Country: IT (occurrence: IT)
  Receive Date: 20221223
  Receipt Date: 20221223
  Transmission Date: 20230113
  Serious: Yes (Hospitalization)
  Sender: FDA-Public Use
  Company Number: None

PATIENT
  Age: 79 Year
  Sex: Female
  Weight: 64 kg

DRUGS (2)
  1. PROPAFENONE HYDROCHLORIDE [Suspect]
     Active Substance: PROPAFENONE HYDROCHLORIDE
     Indication: Product used for unknown indication
     Dosage: HIRED 650MG INSTEAD OF 325MG, UNIT DOSE : 650 MG, ACTION: BICARBONATE 100MEQ INFUSION
     Route: 065
  2. CARVEDILOL PHOSPHATE [Concomitant]
     Active Substance: CARVEDILOL PHOSPHATE
     Indication: Product used for unknown indication
     Dosage: UNIT DOSE : 6.25 MG
     Route: 065

REACTIONS (5)
  - Pericardial effusion [Recovering/Resolving]
  - Asthenia [Recovering/Resolving]
  - Atrioventricular block [Recovering/Resolving]
  - Bundle branch block [Recovering/Resolving]
  - Medication error [Recovering/Resolving]

NARRATIVE: CASE EVENT DATE: 20220830
